FAERS Safety Report 5118188-6 (Version None)
Quarter: 2006Q4

REPORT INFORMATION
  Report Type: 
  Country: None (occurrence: None)
  Receive Date: 20061002
  Receipt Date: 20060626
  Transmission Date: 20070319
  Serious: Yes (Hospitalization)
  Sender: FDA-Public Use
  Company Number: PHFR2006GB02448

PATIENT
  Age: 66 Year
  Sex: Male
  Weight: 80 kg

DRUGS (6)
  1. GRAPEFRUIT JUICE [Suspect]
  2. DIOVAN [Suspect]
     Dosage: UNK, UNK
     Route: 065
     Dates: start: 20020601
  3. SIMVASTATIN [Concomitant]
  4. ZESTRIL [Concomitant]
     Dates: end: 20020601
  5. ISMO [Concomitant]
  6. OMEPRAZOLE [Concomitant]

REACTIONS (8)
  - BLOOD CREATININE INCREASED [None]
  - BLOOD PRESSURE DECREASED [None]
  - BLOOD UREA INCREASED [None]
  - CONSTIPATION [None]
  - HEART RATE DECREASED [None]
  - NAUSEA [None]
  - NONSPECIFIC REACTION [None]
  - URINE OUTPUT INCREASED [None]
